FAERS Safety Report 5542402-6 (Version None)
Quarter: 2007Q4

REPORT INFORMATION
  Report Type: 
  Country: None (occurrence: None)
  Receive Date: 20071210
  Receipt Date: 20071128
  Transmission Date: 20080405
  Serious: Yes (Other)
  Sender: FDA-Public Use
  Company Number: US-GILEAD-2007-0014496

PATIENT
  Age: 36 Year
  Sex: Male

DRUGS (5)
  1. VIREAD [Suspect]
  2. LAMIVUDINE [Concomitant]
     Dates: start: 20040201
  3. RITONAVIR [Concomitant]
  4. FOSAMPRENAVIR [Concomitant]
  5. ABACAVIR [Concomitant]
     Dates: start: 20040201

REACTIONS (2)
  - ALANINE AMINOTRANSFERASE INCREASED [None]
  - HEPATITIS C RNA POSITIVE [None]
